FAERS Safety Report 6653579-3 (Version None)
Quarter: 2010Q1

REPORT INFORMATION
  Report Type: 
  Country: None (occurrence: None)
  Receive Date: 20100326
  Receipt Date: 20100316
  Transmission Date: 20100710
  Serious: Yes (Other)
  Sender: FDA-Public Use
  Company Number: US-ELI_LILLY_AND_COMPANY-US201003004135

PATIENT
  Sex: Female

DRUGS (5)
  1. BYETTA [Suspect]
     Indication: TYPE 2 DIABETES MELLITUS
     Dosage: 5 UG, DAILY (1/D)
     Route: 058
     Dates: start: 20090901, end: 20100304
  2. BYETTA [Suspect]
     Dosage: 10 UG, 2/D
     Route: 058
     Dates: start: 20100304
  3. GLIPIZIDE [Concomitant]
     Indication: TYPE 2 DIABETES MELLITUS
     Dosage: 5 MG, 2/D
     Route: 048
  4. ANTIHYPERTENSIVES [Concomitant]
  5. ANXIOLYTICS [Concomitant]

REACTIONS (8)
  - BLOOD GLUCOSE INCREASED [None]
  - DIARRHOEA [None]
  - DIZZINESS [None]
  - FALL [None]
  - INFLUENZA [None]
  - LOSS OF CONSCIOUSNESS [None]
  - NAUSEA [None]
  - VERTIGO [None]
